FAERS Safety Report 4842713-3 (Version None)
Quarter: 2005Q4

REPORT INFORMATION
  Report Type: 
  Country: None (occurrence: None)
  Receive Date: 20051201
  Receipt Date: 20050908
  Transmission Date: 20060501
  Serious: Yes (Hospitalization)
  Sender: FDA-Public Use
  Company Number: US-MERCK-0509USA01069

PATIENT
  Age: 45 Year
  Sex: Male
  Weight: 123 kg

DRUGS (27)
  1. VIOXX [Suspect]
     Indication: BACK DISORDER
     Route: 048
     Dates: start: 20031003, end: 20040712
  2. VIOXX [Suspect]
     Route: 048
     Dates: start: 20031003, end: 20040712
  3. CLINDAMYCIN [Concomitant]
     Route: 065
  4. HYDROCODONE BITARTRATE + ACETAMINOPHEN [Concomitant]
     Route: 065
  5. KLONOPIN [Concomitant]
     Route: 065
  6. PREVACID [Concomitant]
     Route: 065
  7. ZYRTEC [Concomitant]
     Route: 065
  8. LEVITRA [Concomitant]
     Route: 065
  9. PAXIL [Concomitant]
     Route: 065
  10. LEVAQUIN [Concomitant]
     Route: 065
  11. BIAXIN [Concomitant]
     Route: 065
  12. METHOCARBAMOL [Concomitant]
     Route: 065
  13. FOLGARD [Concomitant]
     Route: 065
  14. TUSSIONEX (CHLORPHENIRAMINE POLISTIREX (+) HYDROCODONE POLISTIREX) [Concomitant]
     Route: 065
  15. HYDROCHLOROTHIAZIDE [Concomitant]
     Route: 065
  16. LINDANE [Concomitant]
     Route: 065
  17. ATROPINE SULFATE AND DIPHENOXYLATE HYDROCHLORIDE [Concomitant]
     Route: 065
  18. POTASSIUM (UNSPECIFIED) [Concomitant]
     Route: 065
  19. PROMETHAZINE [Concomitant]
     Route: 065
  20. ASPIRIN [Concomitant]
     Route: 065
  21. NITROGLYCERIN [Concomitant]
     Route: 065
  22. LIPITOR [Concomitant]
     Route: 065
  23. CLONIDINE [Concomitant]
     Route: 065
  24. COZAAR [Concomitant]
     Route: 065
  25. ATENOLOL MSD [Concomitant]
     Route: 065
  26. ZYPREXA [Concomitant]
     Route: 065
  27. DOXAZOSIN MESYLATE [Concomitant]
     Route: 065

REACTIONS (14)
  - ACUTE MYOCARDIAL INFARCTION [None]
  - ANGINA UNSTABLE [None]
  - ARTERIOSCLEROSIS CORONARY ARTERY [None]
  - CORONARY ARTERY DISEASE [None]
  - CORONARY ARTERY OCCLUSION [None]
  - CORONARY ARTERY STENOSIS [None]
  - DYSLIPIDAEMIA [None]
  - ENCEPHALOPATHY [None]
  - HYPERTENSION [None]
  - HYPOXIA [None]
  - LEUKOCYTOSIS [None]
  - OBESITY [None]
  - POST PROCEDURAL COMPLICATION [None]
  - RESPIRATORY FAILURE [None]
